FAERS Safety Report 15743955 (Version 1)
Quarter: 2018Q4

REPORT INFORMATION
  Report Type: Spontaneous
  Country: US (occurrence: US)
  Receive Date: 20181219
  Receipt Date: 20181219
  Transmission Date: 20190205
  Serious: Yes (Other)
  Sender: FDA-Public Use
  Company Number: None

PATIENT
  Age: 2 Year
  Sex: Female
  Weight: 9 kg

DRUGS (7)
  1. PEPCID (ANTACID) [Concomitant]
  2. DOXORUBICIN [Concomitant]
     Active Substance: DOXORUBICIN
  3. VINCRISTINE [Concomitant]
     Active Substance: VINCRISTINE
  4. LACTULOSE. [Concomitant]
     Active Substance: LACTULOSE
  5. DEXAMETHASONE. [Concomitant]
     Active Substance: DEXAMETHASONE
  6. NYSTATIN. [Concomitant]
     Active Substance: NYSTATIN
  7. MIRALAX [Suspect]
     Active Substance: POLYETHYLENE GLYCOL 3350
     Indication: CONSTIPATION
     Dosage: ?          QUANTITY:.25 SACHET;?
     Route: 048
     Dates: start: 20180720, end: 20181125

REACTIONS (5)
  - Confusional state [None]
  - Anger [None]
  - Emotional disorder [None]
  - Abnormal behaviour [None]
  - Aggression [None]

NARRATIVE: CASE EVENT DATE: 20180721
